FAERS Safety Report 8297531-3 (Version None)
Quarter: 2012Q2

REPORT INFORMATION
  Report Type: 
  Country: None (occurrence: None)
  Receive Date: 20120419
  Receipt Date: 20120413
  Transmission Date: 20120825
  Serious: Yes (Hospitalization)
  Sender: FDA-Public Use
  Company Number: PHHO2012IT005335

PATIENT
  Sex: Female

DRUGS (9)
  1. SIMVASTATIN [Concomitant]
     Dosage: 20 MG, UNK
     Route: 048
     Dates: start: 20100210
  2. LEVOTHYROXINE SODIUM [Concomitant]
     Dosage: 50 MCG
     Route: 048
     Dates: start: 20110323
  3. LETROZOLE [Suspect]
     Indication: BREAST CANCER
     Dosage: 2.5 MG, QD
     Route: 048
     Dates: start: 20100320
  4. ESOMEPRAZOLE MAGNESIUM [Concomitant]
     Dosage: 40 MG, UNK
     Route: 048
     Dates: start: 20110930
  5. TELMISARTAN [Concomitant]
     Indication: HYPERTENSION
     Dosage: 20 MG, UNK
     Route: 048
     Dates: start: 20110930
  6. ACETYLSALICYLIC ACID SRT [Concomitant]
     Indication: HYPERTENSION
     Dosage: 100 MG, UNK
     Route: 048
     Dates: start: 20110930
  7. BISOPROLOL FUMARATE [Concomitant]
     Indication: HYPERTENSION
     Dosage: 2.5 MG, UNK
     Route: 048
     Dates: start: 20110930
  8. METHYLPREDNISOLONE [Concomitant]
     Dosage: 16 MG, UNK
     Route: 048
     Dates: start: 20110323
  9. CLOPIDOGREL [Concomitant]
     Dosage: 75 MG, UNK
     Route: 048
     Dates: start: 20110930

REACTIONS (4)
  - MULTIPLE FRACTURES [None]
  - SPINAL FRACTURE [None]
  - PELVIC FRACTURE [None]
  - SYNCOPE [None]
